FAERS Safety Report 23750170 (Version 1)
Quarter: 2024Q2

REPORT INFORMATION
  Report Type: Spontaneous
  Country: US (occurrence: US)
  Receive Date: 20240417
  Receipt Date: 20240417
  Transmission Date: 20240716
  Serious: Yes (Other)
  Sender: FDA-Public Use
  Company Number: US-BEH-2024170775

PATIENT
  Age: 11 Month
  Sex: Male
  Weight: 10.884 kg

DRUGS (4)
  1. BERINERT [Suspect]
     Active Substance: HUMAN C1-ESTERASE INHIBITOR
     Indication: Hereditary angioedema
     Dosage: 180 IU, PRN
     Route: 042
     Dates: start: 202311
  2. BERINERT [Suspect]
     Active Substance: HUMAN C1-ESTERASE INHIBITOR
     Indication: Hereditary angioedema
     Dosage: 180 IU, PRN
     Route: 042
     Dates: start: 202311
  3. EPINEPHRINE [Concomitant]
     Active Substance: EPINEPHRINE
  4. LIDOCAINE\PRILOCAINE [Concomitant]
     Active Substance: LIDOCAINE\PRILOCAINE

REACTIONS (4)
  - Dermoid cyst [Unknown]
  - Pharyngeal injury [Unknown]
  - Weight increased [Unknown]
  - Fall [Unknown]

NARRATIVE: CASE EVENT DATE: 20240308
